FAERS Safety Report 4440666-3 (Version None)
Quarter: 2004Q3

REPORT INFORMATION
  Report Type: 
  Country: None (occurrence: None)
  Receive Date: 20040901
  Receipt Date: 20040901
  Transmission Date: 20050211
  Serious: Yes (Hospitalization)
  Sender: FDA-Public Use
  Company Number: None

PATIENT
  Sex: Female
  Weight: 67.1324 kg

DRUGS (6)
  1. VELCADE [Suspect]
     Indication: MULTIPLE MYELOMA
     Dosage: PRIOR TO ADMISSION
  2. THALIDOMIDE [Concomitant]
  3. NEXIUM [Concomitant]
  4. ZOMETA [Concomitant]
  5. CALCIUM [Concomitant]
  6. VITAMIN B6 [Concomitant]

REACTIONS (2)
  - PYREXIA [None]
  - THROMBOCYTOPENIA [None]
